FAERS Safety Report 6637673-9 (Version None)
Quarter: 2010Q1

REPORT INFORMATION
  Report Type: 
  Country: None (occurrence: None)
  Receive Date: 20100315
  Receipt Date: 20100315
  Transmission Date: 20100710
  Serious: Yes (Hospitalization)
  Sender: FDA-Public Use
  Company Number: None

PATIENT
  Age: 70 Year
  Sex: Female
  Weight: 77.1115 kg

DRUGS (2)
  1. BONIVA [Suspect]
     Dates: start: 19960101, end: 20050101
  2. BONIVA [Suspect]
     Dates: start: 20060101, end: 20090101

REACTIONS (2)
  - PAIN IN EXTREMITY [None]
  - UNEVALUABLE EVENT [None]
